FAERS Safety Report 6188028-5 (Version None)
Quarter: 2009Q2

REPORT INFORMATION
  Report Type: 
  Country: None (occurrence: None)
  Receive Date: 20090513
  Receipt Date: 20090504
  Transmission Date: 20091009
  Serious: Yes (Hospitalization, Other)
  Sender: FDA-Public Use
  Company Number: PHHY2009CA03793

PATIENT
  Sex: Male

DRUGS (5)
  1. CLOZARIL [Suspect]
     Indication: SCHIZOPHRENIA
     Dosage: 400 MG/DAY
     Route: 048
     Dates: start: 20050301
  2. CLOZARIL [Suspect]
     Dosage: 300 MG/DAY
     Route: 048
  3. NORTRIPTYLINE HCL [Suspect]
  4. ATIVAN [Concomitant]
     Dosage: 0.5 MG
     Dates: start: 20090401
  5. DIVALPROEX SODIUM [Concomitant]
     Dosage: 1200 MG/DAY

REACTIONS (8)
  - ABDOMINAL ABSCESS [None]
  - COLECTOMY [None]
  - CONSTIPATION [None]
  - HERNIA OBSTRUCTIVE [None]
  - INTESTINAL OBSTRUCTION [None]
  - MYOCARDIAL INFARCTION [None]
  - SEPTIC SHOCK [None]
  - SURGERY [None]
